FAERS Safety Report 23342326 (Version 1)
Quarter: 2023Q4

REPORT INFORMATION
  Report Type: Report from Study
  Country: US (occurrence: US)
  Receive Date: 20231227
  Receipt Date: 20231227
  Transmission Date: 20240110
  Serious: Yes (Other)
  Sender: FDA-Public Use
  Company Number: US-BAYER-2023A180541

PATIENT
  Age: 81 Year
  Sex: Male

DRUGS (1)
  1. STIVARGA [Suspect]
     Active Substance: REGORAFENIB
     Indication: Colon cancer
     Dosage: 160 MG, QD, ON DAYS 1-21 OF A 28 DAY CYCLE
     Route: 048
     Dates: start: 202311

REACTIONS (7)
  - Terminal state [Not Recovered/Not Resolved]
  - Balance disorder [Recovered/Resolved]
  - Fall [Recovered/Resolved]
  - Diarrhoea [Recovered/Resolved]
  - Feeling cold [Recovered/Resolved]
  - Fatigue [Recovered/Resolved]
  - Stomatitis [Recovered/Resolved]

NARRATIVE: CASE EVENT DATE: 20231101
